FAERS Safety Report 25319263 (Version 1)
Quarter: 2025Q2

REPORT INFORMATION
  Report Type: Spontaneous
  Country: US (occurrence: None)
  Receive Date: 20250514
  Receipt Date: 20250514
  Transmission Date: 20250717
  Serious: No
  Sender: FDA-CTU
  Company Number: None

PATIENT
  Age: 62 Year
  Sex: Female
  Weight: 57.6 kg

DRUGS (19)
  1. TYRVAYA [Suspect]
     Active Substance: VARENICLINE TARTRATE
  2. ESTAZOLAM [Concomitant]
     Active Substance: ESTAZOLAM
  3. FLONASE [Concomitant]
     Active Substance: FLUTICASONE PROPIONATE
  4. topical steroid for hair loss [Concomitant]
  5. topical minoxidil for hair loss [Concomitant]
  6. CALCIUM [Concomitant]
     Active Substance: CALCIUM
  7. OMEGA 3 [Concomitant]
     Active Substance: CAPSAICIN
  8. VITAMIN B COMPLEX [Concomitant]
     Active Substance: CYANOCOBALAMIN\DEXPANTHENOL\NIACINAMIDE\PYRIDOXINE HYDROCHLORIDE\RIBOFLAVIN 5^-PHOSPHATE SODIUM\THIA
  9. SELENIUM [Concomitant]
     Active Substance: SELENIUM
  10. VITAMIN D3 [Concomitant]
     Active Substance: CHOLECALCIFEROL
  11. JWH-018 [Concomitant]
     Active Substance: JWH-018
  12. ZINC [Concomitant]
     Active Substance: ZINC
  13. magnesium powder [Concomitant]
  14. PROBIOTICS NOS [Concomitant]
     Active Substance: PROBIOTICS NOS
  15. VITAMIN E [Concomitant]
     Active Substance: .ALPHA.-TOCOPHEROL
  16. VITAMIN A [Concomitant]
     Active Substance: VITAMIN A
  17. BIOTIN [Concomitant]
     Active Substance: BIOTIN
  18. VITAMIN B1 [Concomitant]
     Active Substance: THIAMINE HYDROCHLORIDE
  19. VITAMIN C [Concomitant]
     Active Substance: ASCORBIC ACID

REACTIONS (7)
  - Therapeutic product effect incomplete [None]
  - Product use in unapproved indication [None]
  - Sneezing [None]
  - Swelling of eyelid [None]
  - Eyelid function disorder [None]
  - Depression [None]
  - Therapy cessation [None]

NARRATIVE: CASE EVENT DATE: 20250510
